FAERS Safety Report 17177268 (Version 1)
Quarter: 2019Q4

REPORT INFORMATION
  Report Type: Report from Study
  Country: US (occurrence: US)
  Receive Date: 20191219
  Receipt Date: 20191219
  Transmission Date: 20200122
  Serious: Yes (Death, Other)
  Sender: FDA-Public Use
  Company Number: NVSC2019US072281

PATIENT
  Age: 74 Year
  Sex: Female

DRUGS (3)
  1. KYMRIAH [Suspect]
     Active Substance: TISAGENLECLEUCEL
     Indication: DIFFUSE LARGE B-CELL LYMPHOMA
     Dosage: UNK UNK, ONCE/SINGLE
     Route: 041
     Dates: start: 2019
  2. CYCLOPHOSPHAMIDE. [Concomitant]
     Active Substance: CYCLOPHOSPHAMIDE
     Indication: CHEMOTHERAPY
     Dosage: UNK
     Route: 065
  3. FLUDARABINE [Concomitant]
     Active Substance: FLUDARABINE PHOSPHATE
     Indication: CHEMOTHERAPY
     Dosage: UNK
     Route: 065

REACTIONS (11)
  - Pyrexia [Unknown]
  - Hypoxia [Unknown]
  - B-cell type acute leukaemia [Fatal]
  - Haematocrit decreased [Unknown]
  - Escherichia urinary tract infection [Unknown]
  - Haemoglobin decreased [Unknown]
  - Sinusitis [Unknown]
  - Cytokine release syndrome [Recovered/Resolved]
  - Upper respiratory tract infection [Unknown]
  - Platelet count increased [Unknown]
  - Malignant neoplasm progression [Fatal]
